FAERS Safety Report 9723359 (Version 1)
Quarter: 2013Q4

REPORT INFORMATION
  Report Type: Spontaneous
  Country: US (occurrence: US)
  Receive Date: 20131202
  Receipt Date: 20131202
  Transmission Date: 20140711
  Serious: No
  Sender: FDA-Public Use
  Company Number: US-GLAXOSMITHKLINE-A1022822A

PATIENT
  Sex: Female

DRUGS (1)
  1. FLONASE [Suspect]
     Indication: SINUS DISORDER
     Route: 045
     Dates: start: 201304

REACTIONS (2)
  - Retching [Unknown]
  - Upper-airway cough syndrome [Unknown]
